FAERS Safety Report 19977670 (Version 3)
Quarter: 2021Q4

REPORT INFORMATION
  Report Type: Spontaneous
  Country: US (occurrence: US)
  Receive Date: 20211021
  Receipt Date: 20211213
  Transmission Date: 20220303
  Serious: No
  Sender: FDA-Public Use
  Company Number: US-LUPIN PHARMACEUTICALS INC.-2021-19596

PATIENT
  Sex: Female

DRUGS (2)
  1. FLUOCINONIDE [Suspect]
     Active Substance: FLUOCINONIDE
     Indication: Product used for unknown indication
     Dosage: UNK, REFILLED PRESCRIPTION
     Route: 061
     Dates: start: 2021
  2. FLUOCINONIDE [Suspect]
     Active Substance: FLUOCINONIDE
     Dosage: UNK
     Route: 061

REACTIONS (2)
  - Device breakage [Unknown]
  - No adverse event [Unknown]
